FAERS Safety Report 10435773 (Version 2)
Quarter: 2014Q4

REPORT INFORMATION
  Report Type: Spontaneous
  Country: FR (occurrence: FR)
  Receive Date: 20140908
  Receipt Date: 20141201
  Transmission Date: 20150528
  Serious: Yes (Death, Other)
  Sender: FDA-Public Use
  Company Number: FR-JNJFOC-20140825767

PATIENT
  Age: 64 Year
  Sex: Male

DRUGS (11)
  1. SPASFON [Concomitant]
     Active Substance: PHLOROGLUCINOL
     Indication: DIARRHOEA
     Route: 048
     Dates: start: 201307
  2. ABIRATERONE ACETATE [Suspect]
     Active Substance: ABIRATERONE ACETATE
     Indication: PROSTATE CANCER
     Route: 048
     Dates: start: 20140109
  3. DETENSIEL [Concomitant]
     Active Substance: BISOPROLOL FUMARATE
     Indication: HYPERTENSION
     Route: 048
     Dates: start: 2005
  4. TAREG [Concomitant]
     Active Substance: VALSARTAN
     Indication: HYPERTENSION
     Route: 048
     Dates: start: 2005
  5. LOPERAMIDE [Concomitant]
     Active Substance: LOPERAMIDE
     Indication: DIARRHOEA
     Route: 048
     Dates: start: 201307
  6. SMECTA [Concomitant]
     Active Substance: MONTMORILLONITE
     Indication: DIARRHOEA
     Route: 048
     Dates: start: 20140121
  7. IPATASERTIB [Suspect]
     Active Substance: IPATASERTIB
     Indication: PROSTATE CANCER
     Route: 048
     Dates: start: 20140109
  8. KARDEGIC [Concomitant]
     Active Substance: ASPIRIN LYSINE
     Indication: MYOCARDIAL INFARCTION
     Route: 048
     Dates: start: 2005
  9. TAHOR [Concomitant]
     Active Substance: ATORVASTATIN CALCIUM
     Indication: HYPERCHOLESTEROLAEMIA
     Route: 048
     Dates: start: 2005
  10. PREDNISONE. [Suspect]
     Active Substance: PREDNISONE
     Indication: PROSTATE CANCER
     Route: 048
     Dates: start: 20140109
  11. PRIMPERAN [Concomitant]
     Active Substance: METOCLOPRAMIDE HYDROCHLORIDE
     Indication: NAUSEA
     Route: 048
     Dates: start: 201307

REACTIONS (7)
  - Diarrhoea [Not Recovered/Not Resolved]
  - Hypokinesia [Unknown]
  - Vomiting [Unknown]
  - Sepsis [Fatal]
  - General physical health deterioration [Unknown]
  - Renal failure [Unknown]
  - Jaundice [Unknown]

NARRATIVE: CASE EVENT DATE: 20140125
